FAERS Safety Report 15523678 (Version 1)
Quarter: 2018Q4

REPORT INFORMATION
  Report Type: Report from Study
  Country: US (occurrence: US)
  Receive Date: 20181019
  Receipt Date: 20181019
  Transmission Date: 20190205
  Serious: Yes (Death)
  Sender: FDA-Public Use
  Company Number: US-ARIAD PHARMACEUTICALS, INC-2017US008914

PATIENT
  Sex: Male
  Weight: 91 kg

DRUGS (2)
  1. PONATINIB [Suspect]
     Active Substance: PONATINIB
     Dosage: UNK
     Route: 048
     Dates: start: 201605
  2. PONATINIB [Suspect]
     Active Substance: PONATINIB
     Indication: CHRONIC MYELOID LEUKAEMIA
     Dosage: 45 MG, QD
     Route: 048
     Dates: start: 20160127

REACTIONS (8)
  - Pain [Unknown]
  - Libido decreased [Unknown]
  - Blood glucose increased [Unknown]
  - Thrombocytopenia [Unknown]
  - Rash papular [Unknown]
  - Blood chloride increased [Unknown]
  - Death [Fatal]
  - Fatigue [Unknown]
